FAERS Safety Report 13500151 (Version 1)
Quarter: 2017Q2

REPORT INFORMATION
  Report Type: Spontaneous
  Country: US (occurrence: US)
  Receive Date: 20170501
  Receipt Date: 20170501
  Transmission Date: 20170830
  Serious: Yes (Other)
  Sender: FDA-Public Use
  Company Number: US-PROCTER_AND_GAMBLE-GS17046041

PATIENT
  Age: 80 Year
  Sex: Female

DRUGS (2)
  1. CREST [Suspect]
     Active Substance: SODIUM FLUORIDE
     Dosage: COVER ENTIRE BRUSH HEAD, 2 /DAY
     Route: 002
  2. CREST BAKING SODA AND PEROXIDE WHITENING WITH TARTAR PROTECTION [Suspect]
     Active Substance: SODIUM FLUORIDE
     Dosage: COVER ENTIRE BRUSH HEAD, 2 /DAY
     Route: 002

REACTIONS (5)
  - Gingival recession [Not Recovered/Not Resolved]
  - Toothache [Recovered/Resolved]
  - Tooth disorder [Not Recovered/Not Resolved]
  - Dental caries [Recovered/Resolved]
  - Sensitivity of teeth [Recovered/Resolved]

NARRATIVE: CASE EVENT DATE: 2017
